FAERS Safety Report 6935036-X (Version None)
Quarter: 2010Q3

REPORT INFORMATION
  Report Type: 
  Country: None (occurrence: None)
  Receive Date: 20100822
  Receipt Date: 20100810
  Transmission Date: 20110219
  Serious: Yes (Death, Life-Threatening, Hospitalization, Other)
  Sender: FDA-Public Use
  Company Number: PHHY2010JP46086

PATIENT
  Sex: Female
  Weight: 42 kg

DRUGS (20)
  1. GLEEVEC [Suspect]
     Indication: GASTROINTESTINAL STROMAL TUMOUR
     Dosage: 400 MG, DAILY
     Route: 048
     Dates: start: 20100603, end: 20100618
  2. GLEEVEC [Suspect]
     Dosage: 400 MG, UNK
     Route: 048
     Dates: start: 20100719, end: 20100722
  3. ALLOID [Concomitant]
     Dosage: 60 MG, UNK
     Route: 048
     Dates: start: 20100531, end: 20100614
  4. MYSLEE [Concomitant]
     Indication: INSOMNIA
     Dosage: 5 MG, UNK
     Route: 048
     Dates: start: 20100604, end: 20100722
  5. TAKEPRON [Concomitant]
     Dosage: 30 MG, UNK
     Route: 048
     Dates: start: 20100605, end: 20100722
  6. MAALOX [Concomitant]
     Dosage: 3.6 G, UNK
     Route: 048
     Dates: start: 20100611, end: 20100722
  7. LAC B [Concomitant]
     Indication: DIARRHOEA
     Dosage: 3 G, UNK
     Route: 048
     Dates: start: 20100614, end: 20100622
  8. VANCOMYCIN HYDROCHLORIDE [Concomitant]
     Dosage: 2 G, UNK
     Route: 048
     Dates: start: 20100617, end: 20100624
  9. BIOFERMIN [Concomitant]
     Indication: DIARRHOEA
     Dosage: 3 G, UNK
     Route: 048
     Dates: start: 20100620, end: 20100722
  10. ALBUMIN TANNATE [Concomitant]
     Indication: DIARRHOEA
     Dosage: 3 G, UNK
     Route: 048
     Dates: start: 20100712, end: 20100722
  11. TPN [Concomitant]
     Dosage: UNK
  12. FRESH FROZEN PLASMA [Concomitant]
     Dosage: UNK
  13. GLUTAMINE [Concomitant]
     Dosage: UNK
  14. FIBER [Concomitant]
     Dosage: UNK
  15. GAMMAGLOBULIN ^KABI^ [Concomitant]
     Dosage: UNK
  16. ALBUMINAR [Concomitant]
     Dosage: UNK
  17. DOPAMINE HCL [Concomitant]
     Indication: HYPOTENSION
  18. DOBUTAMINE HCL [Concomitant]
     Dosage: UNK
  19. VANCOMYCIN [Concomitant]
     Dosage: UNK
  20. RED BLOOD CELLS [Concomitant]
     Dosage: AT 2 UNITS DAILY FOR 2 DAYS.

REACTIONS (19)
  - ABDOMINAL DISTENSION [None]
  - ANAEMIA [None]
  - CLOSTRIDIAL INFECTION [None]
  - DEPRESSED LEVEL OF CONSCIOUSNESS [None]
  - DIARRHOEA [None]
  - DYSPNOEA [None]
  - GASTROINTESTINAL OEDEMA [None]
  - HAEMATEMESIS [None]
  - HYPOALBUMINAEMIA [None]
  - HYPOTENSION [None]
  - LUNG INFILTRATION [None]
  - MALNUTRITION [None]
  - PROTEIN-LOSING GASTROENTEROPATHY [None]
  - PYREXIA [None]
  - RESPIRATORY ARREST [None]
  - STAPHYLOCOCCUS TEST POSITIVE [None]
  - THERAPEUTIC EMBOLISATION [None]
  - TUMOUR NECROSIS [None]
  - VOMITING [None]
